FAERS Safety Report 8301591-0 (Version None)
Quarter: 2012Q2

REPORT INFORMATION
  Report Type: 
  Country: None (occurrence: None)
  Receive Date: 20120420
  Receipt Date: 20120405
  Transmission Date: 20120825
  Serious: Yes (Hospitalization)
  Sender: FDA-Public Use
  Company Number: US-ROCHE-1057491

PATIENT
  Age: 75 Year
  Sex: Male

DRUGS (2)
  1. HEPARIN [Concomitant]
     Indication: DEEP VEIN THROMBOSIS
  2. ACTIVASE [Suspect]
     Indication: DEEP VEIN THROMBOSIS
     Dosage: 1MG/HR

REACTIONS (6)
  - ACTIVATED PARTIAL THROMBOPLASTIN TIME PROLONGED [None]
  - CEREBELLAR HAEMORRHAGE [None]
  - HYPERHIDROSIS [None]
  - DYSARTHRIA [None]
  - NAUSEA [None]
  - VOMITING [None]
